FAERS Safety Report 21920388 (Version 1)
Quarter: 2023Q1

REPORT INFORMATION
  Report Type: Spontaneous
  Country: US (occurrence: None)
  Receive Date: 20230126
  Receipt Date: 20230126
  Transmission Date: 20230417
  Serious: Yes (Hospitalization)
  Sender: FDA-Public Use
  Company Number: None

PATIENT
  Age: 78 Year
  Sex: Male

DRUGS (1)
  1. IMATINIB MESYLATE [Suspect]
     Active Substance: IMATINIB MESYLATE
     Dosage: 400MG BID ORAL
     Route: 048
     Dates: start: 201911

REACTIONS (2)
  - Pulmonary oedema [None]
  - Unevaluable event [None]

NARRATIVE: CASE EVENT DATE: 20220808
